FAERS Safety Report 22859312 (Version 7)
Quarter: 2023Q4

REPORT INFORMATION
  Report Type: Other
  Country: AR (occurrence: None)
  Receive Date: 20230824
  Receipt Date: 20231219
  Transmission Date: 20240110
  Serious: Yes (Hospitalization)
  Sender: FDA-Public Use
  Company Number: AR-ROCHE-3408760

PATIENT
  Age: 74 Year
  Sex: Male
  Weight: 115 kg

DRUGS (22)
  1. POLATUZUMAB VEDOTIN [Suspect]
     Active Substance: POLATUZUMAB VEDOTIN
     Indication: Diffuse large B-cell lymphoma
     Dosage: FREQUENCY WAS NOT REPORTED - CYCLE 1
     Route: 042
     Dates: start: 20230703
  2. POLATUZUMAB VEDOTIN [Suspect]
     Active Substance: POLATUZUMAB VEDOTIN
     Dosage: FREQUENCY WAS NOT REPORTED - CYCLE 2
     Route: 042
     Dates: start: 20230724
  3. POLATUZUMAB VEDOTIN [Suspect]
     Active Substance: POLATUZUMAB VEDOTIN
     Dosage: FREQUENCY WAS NOT REPORTED - CYCLE 3
     Route: 042
     Dates: start: 20230911
  4. POLATUZUMAB VEDOTIN [Suspect]
     Active Substance: POLATUZUMAB VEDOTIN
     Dosage: FREQUENCY WAS NOT REPORTED - CYCLE 4
     Route: 042
     Dates: start: 20231023
  5. POLATUZUMAB VEDOTIN [Suspect]
     Active Substance: POLATUZUMAB VEDOTIN
     Dosage: FREQUENCY WAS NOT REPORTED - CYCLE 5
     Route: 042
     Dates: start: 20231121
  6. POLATUZUMAB VEDOTIN [Suspect]
     Active Substance: POLATUZUMAB VEDOTIN
     Dosage: FREQUENCY WAS NOT REPORTED - CYCLE 5
     Route: 042
     Dates: start: 20230817
  7. RITUXIMAB [Suspect]
     Active Substance: RITUXIMAB
     Indication: Diffuse large B-cell lymphoma
     Dosage: FREQUENCY WAS NOT REPORTED - CYCLE 1
     Route: 042
     Dates: start: 20230703
  8. RITUXIMAB [Suspect]
     Active Substance: RITUXIMAB
     Dosage: FREQUENCY WAS NOT REPORTED - CYCLE 2
     Route: 042
     Dates: start: 20230724
  9. RITUXIMAB [Suspect]
     Active Substance: RITUXIMAB
     Dosage: FREQUENCY WAS NOT REPORTED - CYCLE 3
     Route: 042
     Dates: start: 20230817
  10. RITUXIMAB [Suspect]
     Active Substance: RITUXIMAB
     Dosage: FREQUENCY WAS NOT REPORTED - CYCLE 4
     Route: 042
     Dates: start: 20230911
  11. RITUXIMAB [Suspect]
     Active Substance: RITUXIMAB
     Dosage: FREQUENCY WAS NOT REPORTED - CYCLE 5
     Route: 042
     Dates: start: 20231023
  12. RITUXIMAB [Suspect]
     Active Substance: RITUXIMAB
     Dosage: FREQUENCY WAS NOT REPORTED - CYCLE 6
     Route: 042
     Dates: start: 20231121
  13. BENDAMUSTINE [Suspect]
     Active Substance: BENDAMUSTINE
     Indication: Diffuse large B-cell lymphoma
     Dosage: FREQUENCY WAS NOT REPORTED - CYCLE 1
     Route: 042
     Dates: start: 20230703
  14. BENDAMUSTINE [Suspect]
     Active Substance: BENDAMUSTINE
     Dosage: FREQUENCY WAS NOT REPORTED - CYCLE 2
     Route: 042
     Dates: start: 20230724
  15. BENDAMUSTINE [Suspect]
     Active Substance: BENDAMUSTINE
     Dosage: FREQUENCY WAS NOT REPORTED - CYCLE 3
     Route: 042
     Dates: start: 20230817
  16. BENDAMUSTINE [Suspect]
     Active Substance: BENDAMUSTINE
     Dosage: FREQUENCY WAS NOT REPORTED - CYCLE 4
     Route: 042
     Dates: start: 20230911
  17. BENDAMUSTINE [Suspect]
     Active Substance: BENDAMUSTINE
     Dosage: FREQUENCY WAS NOT REPORTED - CYCLE 5
     Route: 042
     Dates: start: 20231023
  18. BENDAMUSTINE [Suspect]
     Active Substance: BENDAMUSTINE
     Dosage: FREQUENCY WAS NOT REPORTED - CYCLE 6
     Route: 042
     Dates: start: 20231121
  19. LOSARTAN [Concomitant]
     Active Substance: LOSARTAN
     Indication: Hypertension
  20. ATORVASTATIN [Concomitant]
     Active Substance: ATORVASTATIN
     Indication: Dyslipidaemia
  21. ACYCLOVIR [Concomitant]
     Active Substance: ACYCLOVIR
     Dosage: LIVER PROPHYLAXIS
  22. LEVOTHYROXINE [Concomitant]
     Active Substance: LEVOTHYROXINE
     Indication: Hypothyroidism

REACTIONS (3)
  - Abdominal distension [Recovered/Resolved]
  - Neutropenia [Recovered/Resolved]
  - Pyrexia [Recovered/Resolved]

NARRATIVE: CASE EVENT DATE: 20230724
